FAERS Safety Report 14689929 (Version 1)
Quarter: 2018Q1

REPORT INFORMATION
  Report Type: Spontaneous
  Country: US (occurrence: US)
  Receive Date: 20180327
  Receipt Date: 20180327
  Transmission Date: 20180509
  Serious: Yes (Other)
  Sender: FDA-Public Use
  Company Number: None

PATIENT
  Age: 24 Year
  Sex: Female
  Weight: 70.2 kg

DRUGS (1)
  1. MAVYRET [Suspect]
     Active Substance: GLECAPREVIR\PIBRENTASVIR
     Indication: HEPATITIS C
     Route: 048
     Dates: start: 20180222, end: 20180326

REACTIONS (5)
  - Nausea [None]
  - Rash [None]
  - Rash generalised [None]
  - Swelling face [None]
  - Hypersensitivity [None]

NARRATIVE: CASE EVENT DATE: 20180323
